FAERS Safety Report 13949629 (Version 1)
Quarter: 2017Q3

REPORT INFORMATION
  Report Type: Spontaneous
  Country: US (occurrence: US)
  Receive Date: 20170908
  Receipt Date: 20170908
  Transmission Date: 20171128
  Serious: No
  Sender: FDA-Public Use
  Company Number: US-ROCHE-1137110

PATIENT
  Sex: Female

DRUGS (3)
  1. RITUXAN [Suspect]
     Active Substance: RITUXIMAB
     Dosage: ONE VIAL
     Route: 065
  2. RITUXAN [Suspect]
     Active Substance: RITUXIMAB
     Indication: OFF LABEL USE
     Dosage: 3 VIAL
     Route: 065
  3. RITUXAN [Suspect]
     Active Substance: RITUXIMAB
     Indication: CHRONIC INFLAMMATORY DEMYELINATING POLYRADICULONEUROPATHY
     Route: 065
     Dates: start: 199904

REACTIONS (6)
  - Paraesthesia [Unknown]
  - Feeling hot [Unknown]
  - Fatigue [Unknown]
  - Drug ineffective [Unknown]
  - Sensory disturbance [Unknown]
  - Pain [Unknown]
